FAERS Safety Report 18667722 (Version 1)
Quarter: 2020Q4

REPORT INFORMATION
  Report Type: Report from Study
  Country: BR (occurrence: BR)
  Receive Date: 20201228
  Receipt Date: 20201228
  Transmission Date: 20210114
  Serious: Yes (Other)
  Sender: FDA-Public Use
  Company Number: BR-AMGEN-BRASL2020116705

PATIENT
  Age: 65 Year
  Sex: Female

DRUGS (10)
  1. VECTIBIX [Suspect]
     Active Substance: PANITUMUMAB
     Indication: RECTAL CANCER METASTATIC
     Dosage: EVERY 15 DAYS
     Route: 065
     Dates: start: 2020
  2. NORIPURUM [Concomitant]
     Active Substance: IRON POLYMALTOSE
     Dosage: 100 MILLIGRAM
  3. AMLODIPINE;HYDROCHLOROTHIAZIDE [Concomitant]
     Active Substance: AMLODIPINE BESYLATE\HYDROCHLOROTHIAZIDE
     Dosage: 5 MILLIGRAM, QD (1 PILL DAILY)
  4. ALLOPURINOL. [Concomitant]
     Active Substance: ALLOPURINOL
     Dosage: 100 MILLIGRAM, QD (1 PILL DAILY)
  5. VITAMIN C [Concomitant]
     Active Substance: ASCORBIC ACID
     Dosage: 500 MILLIGRAM, QD (1 PILL DAILY)
  6. FOLINIC ACID [Concomitant]
     Active Substance: LEUCOVORIN
     Indication: RECTAL CANCER METASTATIC
     Dosage: UNK (EVERY 15 DAYS)
  7. XARELTO [Concomitant]
     Active Substance: RIVAROXABAN
     Dosage: 20 MILLIGRAM, QD (1 PILL DAIY)
  8. 5 FU [Concomitant]
     Active Substance: FLUOROURACIL
     Indication: RECTAL CANCER METASTATIC
     Dosage: UNK (EVERY 15 DAYS)
  9. VECTIBIX [Suspect]
     Active Substance: PANITUMUMAB
     Dosage: EVERY 15 DAYS
     Route: 065
     Dates: start: 20200611
  10. OXALIPLATIN. [Concomitant]
     Active Substance: OXALIPLATIN
     Indication: RECTAL CANCER METASTATIC
     Dosage: UNK (EVERY 15 DAYS)

REACTIONS (5)
  - Dysentery [Recovering/Resolving]
  - Drug hypersensitivity [Recovering/Resolving]
  - Sleep disorder due to a general medical condition [Unknown]
  - Onychoclasis [Unknown]
  - Lip dry [Recovering/Resolving]

NARRATIVE: CASE EVENT DATE: 2020
